FAERS Safety Report 7762088-X (Version None)
Quarter: 2011Q3

REPORT INFORMATION
  Report Type: 
  Country: None (occurrence: None)
  Receive Date: 20110920
  Receipt Date: 20110920
  Transmission Date: 20111222
  Serious: Yes (Other)
  Sender: FDA-Public Use
  Company Number: None

PATIENT
  Age: 81 Year
  Sex: Female
  Weight: 58.513 kg

DRUGS (2)
  1. ANALPRAM ADVANCED, VASCULARA [Concomitant]
     Indication: HAEMORRHOIDS
     Dosage: ONE PILL
     Route: 048
     Dates: start: 20100902, end: 20110912
  2. CLINDAMYCIN [Suspect]
     Indication: INFECTION PROPHYLAXIS
     Dosage: ONE PILL
     Route: 048
     Dates: start: 20110811, end: 20110814

REACTIONS (6)
  - RECTAL TENESMUS [None]
  - HAEMATOCHEZIA [None]
  - ABDOMINAL PAIN UPPER [None]
  - MUCOUS STOOLS [None]
  - TENDON PAIN [None]
  - HAEMORRHOIDS [None]
